FAERS Safety Report 6940854-8 (Version None)
Quarter: 2010Q3

REPORT INFORMATION
  Report Type: 
  Country: None (occurrence: None)
  Receive Date: 20100825
  Receipt Date: 20100819
  Transmission Date: 20110219
  Serious: Yes (Life-Threatening, Hospitalization)
  Sender: FDA-Public Use
  Company Number: NL-AMGEN-KDC429689

PATIENT
  Sex: Female

DRUGS (10)
  1. NEULASTA [Suspect]
     Indication: CHEMOTHERAPY
     Dates: start: 20100712
  2. NEUPOGEN [Suspect]
     Indication: LYMPHOMA
     Route: 058
     Dates: start: 20100713
  3. CYCLOPHOSPHAMIDE [Suspect]
     Route: 042
     Dates: start: 20100712
  4. DOXORUBICIN HCL [Suspect]
     Route: 042
     Dates: start: 20100712
  5. VINCRISTINE [Suspect]
     Route: 042
     Dates: start: 20100712
  6. PREDNISONE [Suspect]
     Route: 048
     Dates: start: 20100706
  7. RITUXIMAB [Suspect]
     Route: 042
     Dates: start: 20100712
  8. FLUCONAZOLE [Concomitant]
     Dates: start: 20100709
  9. TRIMETHOPRIM + SULFAMETHOXAZOLE [Concomitant]
     Dates: start: 20100709
  10. ACYCLOVIR SODIUM [Concomitant]

REACTIONS (1)
  - FEBRILE NEUTROPENIA [None]
